FAERS Safety Report 6938741-4 (Version None)
Quarter: 2010Q3

REPORT INFORMATION
  Report Type: 
  Country: None (occurrence: None)
  Receive Date: 20100824
  Receipt Date: 20100814
  Transmission Date: 20110219
  Serious: Yes (Hospitalization, Other)
  Sender: FDA-Public Use
  Company Number: PHHY2010MX14054

PATIENT
  Age: 34 Year
  Sex: Female

DRUGS (5)
  1. TRILEPTAL [Suspect]
     Indication: EPILEPSY
     Dosage: 2 DF, QD
     Route: 048
     Dates: start: 20040101, end: 20100301
  2. ATEMPERATOR LP [Concomitant]
     Dosage: 3 TABLETS
     Dates: start: 20100101
  3. PHENYTOIN [Concomitant]
     Dosage: 1.5 TABLET
     Dates: start: 20080101
  4. DIAZEPAM (VAIIUM) [Concomitant]
     Dosage: UNK
     Dates: start: 20100201
  5. TEGRETOL - SLOW RELEASE [Concomitant]

REACTIONS (10)
  - ABDOMINAL DISCOMFORT [None]
  - ASTHENIA [None]
  - CAESAREAN SECTION [None]
  - DRUG EXPOSURE DURING PREGNANCY [None]
  - DRUG EXPOSURE VIA BREAST MILK [None]
  - DRUG TOXICITY [None]
  - GASTROOESOPHAGEAL REFLUX DISEASE [None]
  - NAUSEA [None]
  - NORMAL NEWBORN [None]
  - VOMITING [None]
